FAERS Safety Report 6589135-5 (Version None)
Quarter: 2010Q1

REPORT INFORMATION
  Report Type: 
  Country: None (occurrence: None)
  Receive Date: 20100218
  Receipt Date: 20100209
  Transmission Date: 20100710
  Serious: Yes (Other)
  Sender: FDA-Public Use
  Company Number: GB-ABBOTT-10P-167-0625274-00

PATIENT
  Age: 28 Year
  Sex: Female

DRUGS (1)
  1. EPILIM CHRONO [Suspect]
     Indication: BIPOLAR DISORDER
     Route: 048
     Dates: start: 20091101, end: 20100122

REACTIONS (2)
  - ABORTION INDUCED [None]
  - DRUG EXPOSURE DURING PREGNANCY [None]
